FAERS Safety Report 18313761 (Version 1)
Quarter: 2020Q3

REPORT INFORMATION
  Report Type: Spontaneous
  Country: CN (occurrence: CN)
  Receive Date: 20200925
  Receipt Date: 20200925
  Transmission Date: 20201103
  Serious: Yes (Hospitalization)
  Sender: FDA-Public Use
  Company Number: CN-JNJFOC-20200936887

PATIENT
  Age: 84 Year
  Sex: Male
  Weight: 50 kg

DRUGS (2)
  1. XARELTO [Suspect]
     Active Substance: RIVAROXABAN
     Indication: PRODUCT USED FOR UNKNOWN INDICATION
     Dosage: 7.5 MG, QD
     Route: 048
     Dates: start: 20190515
  2. AMIODARONE [Concomitant]
     Active Substance: AMIODARONE

REACTIONS (4)
  - Dysuria [Unknown]
  - Off label use [Unknown]
  - Haematuria [Not Recovered/Not Resolved]
  - Cholecystitis acute [Unknown]

NARRATIVE: CASE EVENT DATE: 2020
